FAERS Safety Report 6242334-4 (Version None)
Quarter: 2009Q2

REPORT INFORMATION
  Report Type: 
  Country: None (occurrence: None)
  Receive Date: 20090624
  Receipt Date: 20090617
  Transmission Date: 20091009
  Serious: Yes (Hospitalization)
  Sender: FDA-Public Use
  Company Number: US-BIOGENIDEC-2009BI012029

PATIENT
  Age: 46 Year
  Sex: Female
  Weight: 136 kg

DRUGS (5)
  1. TYSABRI [Suspect]
     Indication: MULTIPLE SCLEROSIS
     Route: 042
     Dates: start: 20090317, end: 20090421
  2. EFFEXOR [Concomitant]
     Indication: CATAPLEXY
     Route: 048
  3. EFFEXOR [Concomitant]
     Indication: SLEEP DISORDER
     Route: 048
  4. MODAFINIL [Concomitant]
     Route: 048
  5. NEBIVOLOL [Concomitant]
     Route: 048

REACTIONS (6)
  - CONVERSION DISORDER [None]
  - HEADACHE [None]
  - NEURALGIA [None]
  - SENSORY DISTURBANCE [None]
  - TRIGEMINAL NEURALGIA [None]
  - URINARY TRACT INFECTION [None]
